FAERS Safety Report 16255728 (Version 1)
Quarter: 2019Q2

REPORT INFORMATION
  Report Type: Spontaneous
  Country: TR (occurrence: TR)
  Receive Date: 20190430
  Receipt Date: 20190430
  Transmission Date: 20190711
  Serious: Yes (Other)
  Sender: FDA-Public Use
  Company Number: TR-PFIZER INC-2019183683

PATIENT
  Weight: .1 kg

DRUGS (13)
  1. AMPICILLIN/SULBACTAM [Suspect]
     Active Substance: AMPICILLIN SODIUM\SULBACTAM SODIUM
     Indication: ANTIBIOTIC PROPHYLAXIS
     Dosage: 1 G, 4X/DAY
     Route: 064
  2. MAGNESIUM SULFATE. [Suspect]
     Active Substance: MAGNESIUM SULFATE
     Dosage: 1 G, UNK
     Route: 064
  3. HYDROXYPROGESTERONE [Suspect]
     Active Substance: HYDROXYPROGESTERONE
     Indication: MATERNAL THERAPY TO ENHANCE FOETAL LUNG MATURITY
     Dosage: 250 MG, SINGLE
     Route: 064
  4. ORNIDAZOLE [Suspect]
     Active Substance: ORNIDAZOLE
     Indication: ANTIBIOTIC PROPHYLAXIS
     Dosage: 500 MG, 2X/DAY
     Route: 064
  5. BETAMETHASONE. [Suspect]
     Active Substance: BETAMETHASONE
     Indication: MATERNAL THERAPY TO ENHANCE FOETAL LUNG MATURITY
     Dosage: 12 MG, 2X/DAY,(2 DOSES OF 12 MG EVERY 12 HOURS)
     Route: 064
  6. NIFEDIPINE. [Suspect]
     Active Substance: NIFEDIPINE
     Dosage: 20 MG, 4X/DAY, (GIVEN UNTIL THE DELIVERY OF THE SECOND FETUS)
     Route: 064
  7. MAGNESIUM SULFATE. [Suspect]
     Active Substance: MAGNESIUM SULFATE
     Dosage: 1 G, UNK (MAINTENANCE DOSE, PER HOUR)
     Route: 064
  8. MAGNESIUM SULFATE. [Suspect]
     Active Substance: MAGNESIUM SULFATE
     Indication: NEUROSURGERY
     Dosage: 4 G, UNK (LOADING DOSE, PER HOUR)
     Route: 064
  9. BETAMETHASONE. [Suspect]
     Active Substance: BETAMETHASONE
     Dosage: 6 MG, WEEKLY, (TWO MORE DOSES OF WEEKLY 6 MG)
     Route: 064
  10. CEFTRIAXONE. [Suspect]
     Active Substance: CEFTRIAXONE
     Indication: ANTIBIOTIC PROPHYLAXIS
     Dosage: 1 G, 2X/DAY
     Route: 064
  11. AMOXICILLIN/CLAVULANATE POTASSIUM [Suspect]
     Active Substance: AMOXICILLIN\CLAVULANATE POTASSIUM
     Indication: ANTIBIOTIC PROPHYLAXIS
     Dosage: 1 G, 2X/DAY
     Route: 064
  12. CLINDAMYCIN PHOSPHATE. [Suspect]
     Active Substance: CLINDAMYCIN PHOSPHATE
     Indication: ANTIBIOTIC PROPHYLAXIS
     Dosage: 900 MG, 3X/DAY
     Route: 064
  13. INDOMETHACIN SODIUM [Suspect]
     Active Substance: INDOMETHACIN SODIUM
     Indication: TOCOLYSIS
     Dosage: 100 MG, UNK
     Route: 064

REACTIONS (3)
  - Maternal exposure during pregnancy [Unknown]
  - Breech presentation [Unknown]
  - Premature baby [Unknown]
